FAERS Safety Report 4630672-8 (Version None)
Quarter: 2005Q2

REPORT INFORMATION
  Report Type: 
  Country: None (occurrence: None)
  Receive Date: 20050408
  Receipt Date: 20050330
  Transmission Date: 20051028
  Serious: Yes (Other)
  Sender: FDA-Public Use
  Company Number: US-JNJFOC-20050200565

PATIENT
  Age: 75 Year
  Sex: Male

DRUGS (6)
  1. RISPERDAL [Suspect]
     Indication: DRUG USE FOR UNKNOWN INDICATION
  2. STELAZINE [Concomitant]
  3. DEPAKOTE [Concomitant]
     Dates: start: 20040101, end: 20040101
  4. BENZATROPINE [Concomitant]
  5. PROZAC [Concomitant]
  6. CYMBALTA [Concomitant]
     Indication: DEPRESSION

REACTIONS (6)
  - ANAEMIA [None]
  - CAROTID ARTERY OCCLUSION [None]
  - CEREBRAL ATROPHY [None]
  - CEREBROVASCULAR ACCIDENT [None]
  - MYOCARDIAL INFARCTION [None]
  - TRANSIENT ISCHAEMIC ATTACK [None]
